FAERS Safety Report 4818388-6 (Version None)
Quarter: 2005Q4

REPORT INFORMATION
  Report Type: 
  Country: None (occurrence: None)
  Receive Date: 20051031
  Receipt Date: 20051017
  Transmission Date: 20060501
  Serious: Yes (Other)
  Sender: FDA-Public Use
  Company Number: 12708

PATIENT
  Age: 61 Year
  Sex: Female

DRUGS (2)
  1. CARBOPLATIN [Suspect]
     Indication: OVARIAN EPITHELIAL CANCER RECURRENT
     Dates: start: 20050929, end: 20050929
  2. PACLITAXEL [Concomitant]

REACTIONS (5)
  - ABDOMINAL PAIN [None]
  - BODY TEMPERATURE DECREASED [None]
  - DYSPNOEA [None]
  - HOT FLUSH [None]
  - TREMOR [None]
